FAERS Safety Report 5868370-5 (Version None)
Quarter: 2008Q3

REPORT INFORMATION
  Report Type: 
  Country: None (occurrence: None)
  Receive Date: 20080903
  Receipt Date: 20080826
  Transmission Date: 20090109
  Serious: Yes (Hospitalization)
  Sender: FDA-Public Use
  Company Number: US-SOLVAY-00208003942

PATIENT
  Age: 24740 Day
  Sex: Male
  Weight: 90.5 kg

DRUGS (3)
  1. ANDROGEL [Suspect]
     Indication: DRUG USE FOR UNKNOWN INDICATION
     Dosage: DAILY DOSE: 2.5 GRAM(S) VIA PUMP
     Route: 062
     Dates: start: 20080701, end: 20080804
  2. BUNCH OF HEART MEDICATIONS [Concomitant]
     Indication: CARDIAC DISORDER
     Dosage: DAILY DOSE:  UNKNOWN
     Route: 048
  3. ASPIRIN [Concomitant]
     Indication: DRUG USE FOR UNKNOWN INDICATION
     Dosage: DAILY DOSE: 81 MILLIGRAM(S)
     Route: 048

REACTIONS (1)
  - PULMONARY EMBOLISM [None]
